FAERS Safety Report 7690789-0 (Version None)
Quarter: 2011Q3

REPORT INFORMATION
  Report Type: 
  Country: None (occurrence: None)
  Receive Date: 20110812
  Receipt Date: 20110715
  Transmission Date: 20111222
  Serious: Yes (Other)
  Sender: FDA-Public Use
  Company Number: 54973 AE# 519

PATIENT
  Sex: Male

DRUGS (1)
  1. QUININE SULFATE [Suspect]
     Indication: MUSCLE SPASMS
     Dosage: 2 TABS ONCE ON 07/11/11

REACTIONS (2)
  - CHEST PAIN [None]
  - ANGINA PECTORIS [None]
